FAERS Safety Report 4568316-6 (Version None)
Quarter: 2005Q1

REPORT INFORMATION
  Report Type: 
  Country: None (occurrence: None)
  Receive Date: 20050131
  Receipt Date: 20050118
  Transmission Date: 20050727
  Serious: Yes (Other)
  Sender: FDA-Public Use
  Company Number: 2005015230

PATIENT
  Age: 57 Year
  Sex: Female
  Weight: 60 kg

DRUGS (7)
  1. ZELDOX (CAPSULES) (ZIPRASIDONE) [Suspect]
     Indication: THINKING ABNORMAL
     Dosage: 40 MG (40 MG, 1 IN 1 D), ORAL
     Route: 048
     Dates: start: 20041130, end: 20041219
  2. MOCLOBEMIDE (MOCLOBEMIDE) [Concomitant]
  3. ROSUVASTATIN (ROSUVASTATIN) [Concomitant]
  4. DEANOL (DEANOL) [Concomitant]
  5. DICLOFENAC (DICLOFENAC) [Concomitant]
  6. MAGNESIUM (MAGNESIUM) [Concomitant]
  7. ASCORBIC ACID [Concomitant]

REACTIONS (2)
  - ANXIETY [None]
  - DELUSION [None]
